FAERS Safety Report 12822120 (Version 3)
Quarter: 2017Q1

REPORT INFORMATION
  Report Type: Report from Study
  Country: CA (occurrence: CA)
  Receive Date: 20161007
  Receipt Date: 20170305
  Transmission Date: 20170428
  Serious: Yes (Other)
  Sender: FDA-Public Use
  Company Number: CA-BEH-2016073911

PATIENT
  Age: 58 Year
  Sex: Female
  Weight: 59 kg

DRUGS (5)
  1. HIZENTRA [Suspect]
     Active Substance: HUMAN IMMUNOGLOBULIN G
     Indication: SECONDARY IMMUNODEFICIENCY
  2. HIZENTRA [Suspect]
     Active Substance: HUMAN IMMUNOGLOBULIN G
     Indication: PYODERMA GANGRENOSUM
     Dosage: 10 G, QW
     Route: 058
     Dates: start: 20160929
  3. HIZENTRA [Suspect]
     Active Substance: HUMAN IMMUNOGLOBULIN G
     Indication: AUTOIMMUNE DISORDER
  4. PRIVIGEN [Suspect]
     Active Substance: HUMAN IMMUNOGLOBULIN G
     Indication: PYODERMA GANGRENOSUM
     Dosage: 40 G, QMT
     Route: 042
  5. PRIVIGEN [Suspect]
     Active Substance: HUMAN IMMUNOGLOBULIN G
     Dosage: 40 G, TOT
     Route: 042
     Dates: start: 20160923, end: 20160923

REACTIONS (8)
  - Poor venous access [Unknown]
  - Headache [Not Recovered/Not Resolved]
  - Infusion site discolouration [Recovered/Resolved]
  - Skin ulcer [Not Recovered/Not Resolved]
  - Infusion site erythema [Recovered/Resolved]
  - Skin discolouration [Not Recovered/Not Resolved]
  - Skin infection [Unknown]
  - Device related infection [Unknown]

NARRATIVE: CASE EVENT DATE: 20160929
